FAERS Safety Report 5253244-3 (Version None)
Quarter: 2007Q1

REPORT INFORMATION
  Report Type: 
  Country: None (occurrence: None)
  Receive Date: 20070220
  Receipt Date: 20070216
  Transmission Date: 20070707
  Serious: No
  Sender: FDA-Public Use
  Company Number: 200711396

PATIENT
  Age: 41 Year
  Sex: Female
  Weight: 55.7924 kg

DRUGS (4)
  1. VIVAGLOBIN [Suspect]
     Indication: PRIMARY IMMUNODEFICIENCY SYNDROME
     Dosage: 5.6 G Q1W SC
     Route: 058
     Dates: start: 20061127, end: 20061127
  2. VIVAGLOBIN [Suspect]
     Indication: PRIMARY IMMUNODEFICIENCY SYNDROME
     Dosage: 5.6 G Q1W SC
     Route: 058
     Dates: start: 20061204, end: 20061204
  3. VIVAGLOBIN [Suspect]
     Indication: PRIMARY IMMUNODEFICIENCY SYNDROME
     Dosage: 5.6 G Q1W SC
     Route: 058
     Dates: start: 20061211, end: 20061211
  4. VIVAGLOBIN [Suspect]
     Indication: PRIMARY IMMUNODEFICIENCY SYNDROME
     Dosage: 5.6 G Q1W SC
     Route: 058
     Dates: start: 20061218, end: 20061218

REACTIONS (7)
  - ARTHRALGIA [None]
  - BREAST MASS [None]
  - CONDITION AGGRAVATED [None]
  - DYSGEUSIA [None]
  - HEADACHE [None]
  - INFUSION SITE PAIN [None]
  - NAUSEA [None]
